FAERS Safety Report 7720977-6 (Version None)
Quarter: 2011Q3

REPORT INFORMATION
  Report Type: 
  Country: None (occurrence: None)
  Receive Date: 20110831
  Receipt Date: 20110811
  Transmission Date: 20111222
  Serious: Yes (Hospitalization, Other)
  Sender: FDA-Public Use
  Company Number: US-BAYER-201036872NA

PATIENT
  Age: 22 Year
  Sex: Female
  Weight: 99.773 kg

DRUGS (7)
  1. YASMIN [Suspect]
     Dosage: UNK
     Dates: start: 20060601, end: 20080801
  2. YAZ [Suspect]
     Dosage: UNK
     Route: 048
     Dates: start: 20060601, end: 20081001
  3. YASMIN [Suspect]
     Dosage: UNK
  4. YAZ [Suspect]
     Dosage: UNK
     Dates: start: 20060601, end: 20080801
  5. DROSPIRENONE AND ETHINYL ESTRADIOL [Suspect]
     Dosage: UNK
     Dates: start: 20060601, end: 20080801
  6. YASMIN [Suspect]
     Dosage: UNK
     Route: 048
     Dates: start: 20060601, end: 20081001
  7. DROSPIRENONE AND ETHINYL ESTRADIOL [Suspect]
     Dosage: UNK
     Dates: start: 20060601, end: 20081001

REACTIONS (5)
  - GALLBLADDER DISORDER [None]
  - PAIN [None]
  - CHOLECYSTITIS CHRONIC [None]
  - GALLBLADDER INJURY [None]
  - CHOLELITHIASIS [None]
